FAERS Safety Report 9886640 (Version 2)
Quarter: 2014Q1

REPORT INFORMATION
  Report Type: Spontaneous
  Country: FR (occurrence: FR)
  Receive Date: 20140210
  Receipt Date: 20140210
  Transmission Date: 20141002
  Serious: Yes (Death, Hospitalization, Other)
  Sender: FDA-Public Use
  Company Number: GXKR2006FR00894

PATIENT
  Age: 45 Year
  Sex: Female

DRUGS (4)
  1. 5-FLUOROURACIL [Suspect]
     Indication: CERVIX CARCINOMA
     Dosage: 400 MG/M2, BOLUS DOSE
     Route: 065
  2. 5-FLUOROURACIL [Suspect]
     Dosage: 600 MG/M2, DAY 1, DAY 2
     Route: 042
  3. CISPLATIN [Concomitant]
     Indication: CERVIX CARCINOMA
     Dosage: 40 MG/M2, DAY 3
     Route: 065
  4. CORTICOSTEROIDS [Concomitant]
     Dosage: 1 MG, QD
     Route: 065

REACTIONS (4)
  - Encephalopathy [Fatal]
  - Altered state of consciousness [Fatal]
  - Convulsion [Fatal]
  - Toxicity to various agents [Unknown]
